FAERS Safety Report 4722526-3 (Version None)
Quarter: 2005Q3

REPORT INFORMATION
  Report Type: 
  Country: None (occurrence: None)
  Receive Date: 20050722
  Receipt Date: 20050718
  Transmission Date: 20060218
  Serious: Yes (Hospitalization, Other)
  Sender: FDA-Public Use
  Company Number: FR-JNJFOC-20050400753

PATIENT
  Sex: Male
  Weight: 13.3 kg

DRUGS (4)
  1. EPITOMAX [Suspect]
     Route: 048
  2. EPITOMAX [Suspect]
     Indication: PARTIAL SEIZURES
     Dosage: 90MG DAILY
     Route: 048
  3. ZARONTIN [Concomitant]
  4. URBANYL [Concomitant]

REACTIONS (3)
  - BLOOD BICARBONATE DECREASED [None]
  - GROWTH RETARDATION [None]
  - WEIGHT DECREASED [None]
